FAERS Safety Report 8698915 (Version 7)
Quarter: 2013Q3

REPORT INFORMATION
  Report Type: Report from Study
  Country: CA (occurrence: CA)
  Receive Date: 20120802
  Receipt Date: 20130701
  Transmission Date: 20140515
  Serious: Yes (Death, Other)
  Sender: FDA-Public Use
  Company Number: CA-ROCHE-1093813

PATIENT
  Age: 49 Year
  Sex: Female

DRUGS (8)
  1. BEVACIZUMAB [Suspect]
     Indication: GLIOBLASTOMA
     Route: 042
     Dates: start: 20120323, end: 20130110
  2. BEVACIZUMAB [Suspect]
     Route: 042
     Dates: start: 20120404
  3. BEVACIZUMAB [Suspect]
     Route: 042
     Dates: start: 20120516
  4. BEVACIZUMAB [Suspect]
     Route: 042
     Dates: start: 20120725
  5. BEVACIZUMAB [Suspect]
     Route: 065
     Dates: start: 20121002
  6. BEVACIZUMAB [Suspect]
     Route: 065
     Dates: start: 20121127
  7. ETOPOSIDE [Suspect]
     Indication: GLIOBLASTOMA
     Route: 065
     Dates: start: 20120719
  8. VALPROIC ACID [Concomitant]

REACTIONS (15)
  - Death [Fatal]
  - Glioblastoma [Not Recovered/Not Resolved]
  - Disease progression [Not Recovered/Not Resolved]
  - Incision site infection [Unknown]
  - White blood cell count decreased [Recovering/Resolving]
  - Neutrophil count decreased [Recovering/Resolving]
  - Craniotomy [Unknown]
  - Nausea [Recovered/Resolved]
  - Platelet count decreased [Recovering/Resolving]
  - Monocyte count decreased [Unknown]
  - Alopecia [Not Recovered/Not Resolved]
  - Pain in extremity [Not Recovered/Not Resolved]
  - Musculoskeletal pain [Not Recovered/Not Resolved]
  - Red cell distribution width increased [Unknown]
  - Lymphocyte count decreased [Unknown]
